FAERS Safety Report 7108314-1 (Version None)
Quarter: 2010Q4

REPORT INFORMATION
  Report Type: 
  Country: None (occurrence: None)
  Receive Date: 20101115
  Receipt Date: 20101115
  Transmission Date: 20110411
  Serious: Yes (Life-Threatening, Other)
  Sender: FDA-Public Use
  Company Number: None

PATIENT
  Sex: Female
  Weight: 68.0396 kg

DRUGS (1)
  1. DIOVAN HCT 320/25 MG. NOVARTIS-MANUF. [Suspect]
     Indication: HYPERTENSION
     Dosage: 1 PER DAY ONCE DAILY BY MOUTH
     Route: 048
     Dates: start: 20100922, end: 20101002

REACTIONS (2)
  - BLOOD TEST ABNORMAL [None]
  - MEDICAL DIET [None]
